FAERS Safety Report 20617160 (Version 1)
Quarter: 2022Q1

REPORT INFORMATION
  Report Type: Spontaneous
  Country: DE (occurrence: DE)
  Receive Date: 20220321
  Receipt Date: 20220321
  Transmission Date: 20220423
  Serious: Yes (Other)
  Sender: FDA-Public Use
  Company Number: DE-ELI_LILLY_AND_COMPANY-DE202112012775

PATIENT
  Age: 39 Year
  Sex: Male

DRUGS (2)
  1. STRATTERA [Suspect]
     Active Substance: ATOMOXETINE HYDROCHLORIDE
     Indication: Autism spectrum disorder
     Dosage: UNK UNK, UNKNOWN
     Route: 048
  2. STRATTERA [Suspect]
     Active Substance: ATOMOXETINE HYDROCHLORIDE
     Indication: Attention deficit hyperactivity disorder

REACTIONS (7)
  - Hyperacusis [Unknown]
  - Photophobia [Unknown]
  - Asthma exercise induced [Unknown]
  - Urine abnormality [Unknown]
  - Homocysteine urine [Unknown]
  - Tachycardia [Recovered/Resolved]
  - Insomnia [Unknown]
